FAERS Safety Report 4710194-6 (Version None)
Quarter: 2005Q3

REPORT INFORMATION
  Report Type: 
  Country: None (occurrence: None)
  Receive Date: 20050709
  Receipt Date: 20050616
  Transmission Date: 20060218
  Serious: Yes (Hospitalization)
  Sender: FDA-Public Use
  Company Number: JP-MERCK-0506USA03170

PATIENT
  Age: 86 Year
  Sex: Male

DRUGS (3)
  1. PEPCID [Suspect]
     Route: 042
     Dates: start: 20050418
  2. PEPCID [Suspect]
     Route: 048
     Dates: start: 20041213, end: 20050417
  3. GRAMALIL [Concomitant]
     Route: 048
     Dates: start: 20050616

REACTIONS (2)
  - ADVERSE EVENT [None]
  - DYSKINESIA [None]
